FAERS Safety Report 18250758 (Version 1)
Quarter: 2020Q3

REPORT INFORMATION
  Report Type: Spontaneous
  Country: GB (occurrence: GB)
  Receive Date: 20200909
  Receipt Date: 20200909
  Transmission Date: 20201103
  Serious: Yes (Hospitalization)
  Sender: FDA-Public Use
  Company Number: GB-B.BRAUN MEDICAL INC.-2089565

PATIENT
  Age: 21 Year
  Sex: Female

DRUGS (2)
  1. LIDOCAINE HYDROCHLORIDE AND DEXTROSE [Suspect]
     Active Substance: DEXTROSE\LIDOCAINE HYDROCHLORIDE
     Indication: LOCAL ANAESTHESIA
     Dates: start: 20200827
  2. MICORGYNON (ETHINYLESTRADIOL, LEVONORGESTREL) [Concomitant]
     Dates: start: 20200827

REACTIONS (4)
  - Paraesthesia [Recovering/Resolving]
  - Photophobia [Recovering/Resolving]
  - Gait disturbance [Recovering/Resolving]
  - Seizure [Recovered/Resolved]
